FAERS Safety Report 7296240-7 (Version None)
Quarter: 2011Q1

REPORT INFORMATION
  Report Type: 
  Country: None (occurrence: None)
  Receive Date: 20110216
  Receipt Date: 20110208
  Transmission Date: 20110831
  Serious: Yes (Hospitalization)
  Sender: FDA-Public Use
  Company Number: SE-ASTRAZENECA-2011SE07678

PATIENT
  Age: 74 Year
  Sex: Female

DRUGS (1)
  1. FELODIPINE [Suspect]
     Indication: ESSENTIAL HYPERTENSION
     Route: 048
     Dates: end: 20100831

REACTIONS (1)
  - ORTHOSTATIC HYPOTENSION [None]
